FAERS Safety Report 25612077 (Version 1)
Quarter: 2025Q3

REPORT INFORMATION
  Report Type: Spontaneous
  Country: CA (occurrence: CA)
  Receive Date: 20250728
  Receipt Date: 20250728
  Transmission Date: 20251020
  Serious: Yes (Other)
  Sender: AMGEN
  Company Number: CA-AMGEN-CANSP2025142547

PATIENT
  Age: 65 Year
  Sex: Female

DRUGS (1)
  1. RITUXIMAB [Suspect]
     Active Substance: RITUXIMAB
     Indication: Rheumatoid arthritis
     Route: 065

REACTIONS (7)
  - Myelodysplastic syndrome [Unknown]
  - Connective tissue disease-associated interstitial lung disease [Unknown]
  - Rheumatoid arthritis [Unknown]
  - Organising pneumonia [Not Recovered/Not Resolved]
  - Bronchiectasis [Unknown]
  - COVID-19 [Unknown]
  - Aplastic anaemia [Unknown]
